FAERS Safety Report 7987613-5 (Version None)
Quarter: 2011Q4

REPORT INFORMATION
  Report Type: 
  Country: None (occurrence: None)
  Receive Date: 20111216
  Receipt Date: 20110818
  Transmission Date: 20120403
  Serious: No
  Sender: FDA-Public Use
  Company Number: US-BRISTOL-MYERS SQUIBB COMPANY-14131676

PATIENT
  Age: 53 Year
  Sex: Female

DRUGS (6)
  1. FISH OIL [Concomitant]
  2. LEVOXYL [Concomitant]
  3. EMSAM [Suspect]
     Indication: DEPRESSION
     Dosage: 12 MG EMSAM PATCH
     Dates: start: 20060801
  4. ABILIFY [Suspect]
     Indication: DEPRESSION
     Dates: start: 20060801
  5. TRIHEXYPHENIDYL HCL [Concomitant]
  6. CYTOMEL [Concomitant]

REACTIONS (3)
  - DISSOCIATIVE FUGUE [None]
  - DISTURBANCE IN ATTENTION [None]
  - RESTLESSNESS [None]
